FAERS Safety Report 4449528-9 (Version None)
Quarter: 2004Q3

REPORT INFORMATION
  Report Type: 
  Country: None (occurrence: None)
  Receive Date: 20040914
  Receipt Date: 20040826
  Transmission Date: 20050211
  Serious: Yes (Hospitalization)
  Sender: FDA-Public Use
  Company Number: 200412770JP

PATIENT
  Age: 35 Year
  Sex: Male

DRUGS (2)
  1. KETEK [Suspect]
     Indication: LARYNGOPHARYNGITIS
     Route: 048
     Dates: start: 20040810, end: 20040810
  2. LOXONIN [Concomitant]
     Indication: GLOSSITIS
     Dosage: DOSE: UNK
     Route: 048
     Dates: start: 20040802

REACTIONS (3)
  - BLISTER [None]
  - DRUG HYPERSENSITIVITY [None]
  - URTICARIA GENERALISED [None]
